FAERS Safety Report 19537623 (Version 2)
Quarter: 2021Q3

REPORT INFORMATION
  Report Type: Report from Study
  Country: None (occurrence: JP)
  Receive Date: 20210713
  Receipt Date: 20210811
  Transmission Date: 20211014
  Serious: Yes (Other)
  Sender: FDA-Public Use
  Company Number: JP-ABBVIE-19P-087-2996101-00

PATIENT
  Age: 48 Year
  Sex: Male
  Weight: 61 kg

DRUGS (10)
  1. LOXOPROFEN [Concomitant]
     Active Substance: LOXOPROFEN
     Indication: BULBOSPINAL MUSCULAR ATROPHY CONGENITAL
     Dosage: 60 MILLIGRAM
     Route: 065
  2. HOCHUEKKITO [Concomitant]
     Active Substance: HERBALS
     Indication: BULBOSPINAL MUSCULAR ATROPHY CONGENITAL
     Dosage: 7.5 GRAM
     Route: 065
     Dates: start: 20190726, end: 20191101
  3. ADOFEED [Concomitant]
     Active Substance: FLURBIPROFEN
     Indication: BULBOSPINAL MUSCULAR ATROPHY CONGENITAL
     Dosage: 40 MILLIGRAM
     Route: 065
     Dates: start: 20181005
  4. SUMILU [Concomitant]
     Active Substance: FELBINAC
     Indication: BULBOSPINAL MUSCULAR ATROPHY CONGENITAL
     Dosage: UNK
     Route: 065
     Dates: start: 20181005
  5. ENSURE [Concomitant]
     Active Substance: AMINO ACIDS\DEXTROSE\ELECTROLYTES NOS\SOYBEAN OIL\VITAMINS
     Indication: BULBOSPINAL MUSCULAR ATROPHY CONGENITAL
     Dosage: 250 MILLILITER
     Route: 065
     Dates: start: 20191101
  6. LEUPLIN [Suspect]
     Active Substance: LEUPROLIDE ACETATE
     Indication: BULBOSPINAL MUSCULAR ATROPHY CONGENITAL
     Dosage: 11.25 MILLIGRAM, Q3MONTHS
     Route: 058
     Dates: start: 20170908
  7. METHYCOBAL [Concomitant]
     Active Substance: METHYLCOBALAMIN
     Indication: BULBOSPINAL MUSCULAR ATROPHY CONGENITAL
     Dosage: 1500 MICROGRAM
     Route: 065
  8. KETOPROFEN. [Concomitant]
     Active Substance: KETOPROFEN
     Indication: BULBOSPINAL MUSCULAR ATROPHY CONGENITAL
     Dosage: 20 MILLIGRAM
     Route: 065
  9. KAKKONTO [Concomitant]
     Active Substance: HERBALS
     Indication: BULBOSPINAL MUSCULAR ATROPHY CONGENITAL
     Dosage: 7.5 GRAM
     Route: 065
     Dates: start: 20191101
  10. FLUNITRAZEPAM [Concomitant]
     Active Substance: FLUNITRAZEPAM
     Indication: PRODUCT USED FOR UNKNOWN INDICATION
     Dosage: 1 MILLIGRAM
     Route: 065

REACTIONS (9)
  - Nasopharyngitis [Recovered/Resolved]
  - Constipation [Recovering/Resolving]
  - Lower limb fracture [Recovered/Resolved]
  - Irritable bowel syndrome [Not Recovered/Not Resolved]
  - Dizziness [Recovered/Resolved]
  - Eczema [Not Recovered/Not Resolved]
  - Conjunctivitis [Not Recovered/Not Resolved]
  - Pharyngitis [Recovered/Resolved]
  - Oedema peripheral [Recovered/Resolved]

NARRATIVE: CASE EVENT DATE: 201806
